FAERS Safety Report 6945670-9 (Version None)
Quarter: 2010Q3

REPORT INFORMATION
  Report Type: 
  Country: None (occurrence: None)
  Receive Date: 20100827
  Receipt Date: 20100818
  Transmission Date: 20110219
  Serious: Yes (Other)
  Sender: FDA-Public Use
  Company Number: GXKR2010JP08723

PATIENT
  Age: 52 Year
  Sex: Male

DRUGS (3)
  1. ITRACONAZOLE [Suspect]
     Dosage: 200 MG/DAY
     Route: 065
  2. BORTEZOMIB [Interacting]
     Indication: MULTIPLE MYELOMA
     Dosage: 1.3 MG/M2 ON DAYS 1, 4, 8 AND 11
     Route: 042
  3. DEXAMETHASONE [Concomitant]
     Dosage: 20 MG ON DAYS 1, 2, 4, 5, 8, 9, 11, 12
     Route: 048

REACTIONS (5)
  - DRUG INTERACTION [None]
  - NEUROPATHY PERIPHERAL [None]
  - NEUTROPENIA [None]
  - SENSORIMOTOR DISORDER [None]
  - THROMBOCYTOPENIA [None]
